FAERS Safety Report 12730267 (Version 1)
Quarter: 2016Q3

REPORT INFORMATION
  Report Type: Other
  Country: OM (occurrence: OM)
  Receive Date: 20160909
  Receipt Date: 20160909
  Transmission Date: 20161109
  Serious: Yes (Other)
  Sender: FDA-Public Use
  Company Number: OM-VALIDUS PHARMACEUTICALS LLC-OM-2016VAL002633

PATIENT
  Age: 80 Year
  Sex: Male

DRUGS (1)
  1. FUROSEMIDE. [Suspect]
     Active Substance: FUROSEMIDE
     Indication: PRODUCT USED FOR UNKNOWN INDICATION
     Dosage: UNK

REACTIONS (2)
  - Polyuria [Unknown]
  - Renal impairment [Unknown]
